FAERS Safety Report 7718589-3 (Version None)
Quarter: 2011Q3

REPORT INFORMATION
  Report Type: 
  Country: None (occurrence: None)
  Receive Date: 20110830
  Receipt Date: 20101018
  Transmission Date: 20111222
  Serious: No
  Sender: FDA-Public Use
  Company Number: US-BAYER-201037457NA

PATIENT
  Sex: Female

DRUGS (1)
  1. LEVITRA [Suspect]
     Dosage: 10 MG, ONCE
     Route: 048
     Dates: start: 20101018, end: 20101018

REACTIONS (1)
  - NO ADVERSE EVENT [None]
